FAERS Safety Report 5615138-0 (Version None)
Quarter: 2008Q1

REPORT INFORMATION
  Report Type: 
  Country: None (occurrence: None)
  Receive Date: 20080206
  Receipt Date: 20070727
  Transmission Date: 20080703
  Serious: No
  Sender: FDA-Public Use
  Company Number: A0663689A

PATIENT
  Age: 61 Year
  Sex: Female

DRUGS (13)
  1. ARIXTRA [Suspect]
     Route: 058
     Dates: start: 20070517
  2. NIFEREX-150 FORTE [Concomitant]
  3. KLOR-CON [Concomitant]
  4. LASIX [Concomitant]
  5. ASPIRIN [Concomitant]
  6. CLONIDINE [Concomitant]
  7. AMIODARONE HCL [Concomitant]
  8. PLAQUENIL [Concomitant]
  9. SYNTHROID [Concomitant]
  10. NORVASC [Concomitant]
  11. DOXYCYCLINE [Concomitant]
  12. BENAZEPRIL HYDROCHLORIDE [Concomitant]
  13. SIMVASTATIN [Concomitant]

REACTIONS (5)
  - INJECTION SITE BRUISING [None]
  - INJECTION SITE ERYTHEMA [None]
  - INJECTION SITE SWELLING [None]
  - INJECTION SITE VESICLES [None]
  - PHARMACEUTICAL PRODUCT COMPLAINT [None]
